FAERS Safety Report 4822593-2 (Version None)
Quarter: 2005Q4

REPORT INFORMATION
  Report Type: 
  Country: None (occurrence: None)
  Receive Date: 20051104
  Receipt Date: 20051025
  Transmission Date: 20060501
  Serious: Yes (Hospitalization)
  Sender: FDA-Public Use
  Company Number: 2005BI004585

PATIENT
  Age: 40 Year
  Sex: Female

DRUGS (1)
  1. AVONEX [Suspect]
     Indication: MULTIPLE SCLEROSIS

REACTIONS (5)
  - ARTHRALGIA [None]
  - BACK PAIN [None]
  - INJECTION SITE CELLULITIS [None]
  - INSOMNIA [None]
  - PAIN IN EXTREMITY [None]
